FAERS Safety Report 16439844 (Version 1)
Quarter: 2019Q2

REPORT INFORMATION
  Report Type: Spontaneous
  Country: US (occurrence: US)
  Receive Date: 20190617
  Receipt Date: 20190617
  Transmission Date: 20190711
  Serious: No
  Sender: FDA-Public Use
  Company Number: US-PFIZER INC-2019255034

PATIENT
  Age: 74 Year
  Sex: Female

DRUGS (1)
  1. CORTEF [Suspect]
     Active Substance: HYDROCORTISONE
     Dosage: UNK

REACTIONS (6)
  - Cushingoid [Unknown]
  - Petechiae [Unknown]
  - Dysgeusia [Unknown]
  - Oedema [Unknown]
  - Drug hypersensitivity [Unknown]
  - Purpura [Unknown]
